FAERS Safety Report 12959964 (Version 4)
Quarter: 2018Q2

REPORT INFORMATION
  Report Type: Spontaneous
  Country: US (occurrence: US)
  Receive Date: 20161121
  Receipt Date: 20180607
  Transmission Date: 20180711
  Serious: No
  Sender: FDA-Public Use
  Company Number: US-JNJFOC-20161106197

PATIENT
  Age: 58 Year
  Sex: Female
  Weight: 60.33 kg

DRUGS (26)
  1. SEROQUEL [Concomitant]
     Active Substance: QUETIAPINE FUMARATE
     Indication: ANXIETY
     Dosage: 8 YEARS
     Route: 065
  2. XANAX [Concomitant]
     Active Substance: ALPRAZOLAM
     Indication: ANXIETY
     Route: 065
  3. MAGNESIUM [Concomitant]
     Active Substance: MAGNESIUM
     Indication: CARDIAC DISORDER
     Route: 065
  4. CALCIUM [Concomitant]
     Active Substance: CALCIUM
     Indication: NUTRITIONAL SUPPLEMENTATION
     Route: 065
  5. ELDERBERRY [Concomitant]
     Active Substance: HERBALS
     Indication: PRODUCT USED FOR UNKNOWN INDICATION
     Route: 065
  6. CURCUMIN [Concomitant]
     Active Substance: CURCUMIN
     Indication: CARDIAC DISORDER
     Route: 065
  7. MAGNESIUM [Concomitant]
     Active Substance: MAGNESIUM
     Indication: DYSPEPSIA
     Route: 065
  8. VITAMIN D [Concomitant]
     Active Substance: CHOLECALCIFEROL
     Indication: ANTIOXIDANT THERAPY
     Route: 065
  9. ALPRAZOLAM. [Concomitant]
     Active Substance: ALPRAZOLAM
     Indication: ANXIETY
     Dosage: 15 YEARS
     Route: 065
  10. HOPS. [Concomitant]
     Active Substance: HOPS
     Indication: INSOMNIA
     Route: 065
  11. RESTASIS [Concomitant]
     Active Substance: CYCLOSPORINE
     Indication: DRY EYE
     Route: 047
  12. GUGGULIPID [Concomitant]
     Indication: CARDIAC DISORDER
     Route: 065
  13. WOMENS ROGAINE UNSCENTED [Suspect]
     Active Substance: MINOXIDIL
     Indication: ALOPECIA
     Dosage: 1/2 CAPFUL TO 3/4 CAPFUL????1 CAPFUL ON ROOTS AND THINNING HAIR
     Route: 061
     Dates: start: 20160905, end: 201610
  14. AMBIEN [Concomitant]
     Active Substance: ZOLPIDEM TARTRATE
     Indication: INSOMNIA
     Dosage: 5-10YEARS
     Route: 065
  15. SEROQUEL [Concomitant]
     Active Substance: QUETIAPINE FUMARATE
     Indication: INSOMNIA
     Dosage: 8 YEARS
     Route: 065
  16. MELATONIN [Concomitant]
     Active Substance: MELATONIN
     Indication: INSOMNIA
     Route: 065
  17. VALERIAN ROOT [Concomitant]
     Active Substance: VALERIAN
     Indication: INSOMNIA
     Route: 065
  18. WOMENS ROGAINE UNSCENTED [Suspect]
     Active Substance: MINOXIDIL
     Indication: ALOPECIA
     Route: 061
     Dates: start: 20170522
  19. WOMENS ROGAINE UNSCENTED [Suspect]
     Active Substance: MINOXIDIL
     Indication: ALOPECIA
     Route: 061
     Dates: start: 2017, end: 2017
  20. LYRICA [Concomitant]
     Active Substance: PREGABALIN
     Indication: FIBROMYALGIA
     Dosage: 8 YEARS
     Route: 065
  21. VITAMIN E [Concomitant]
     Active Substance: .ALPHA.-TOCOPHEROL
     Indication: ANTIOXIDANT THERAPY
     Route: 065
  22. BERBERINE [Concomitant]
     Active Substance: BERBERINE
     Indication: CARDIAC DISORDER
     Route: 065
  23. GUGGULIPID [Concomitant]
     Indication: BLOOD CHOLESTEROL
     Route: 065
  24. SLIPPERY ELM [Concomitant]
     Active Substance: ELM
     Indication: CONSTIPATION
     Route: 065
  25. CURCUMIN [Concomitant]
     Active Substance: CURCUMIN
     Indication: BLOOD CHOLESTEROL
     Route: 065
  26. BERBERINE [Concomitant]
     Active Substance: BERBERINE
     Indication: BLOOD CHOLESTEROL ABNORMAL
     Route: 065

REACTIONS (5)
  - Therapeutic response unexpected [Unknown]
  - Overdose [Unknown]
  - Product use in unapproved indication [Unknown]
  - Hair colour changes [Recovering/Resolving]
  - Alopecia [Unknown]

NARRATIVE: CASE EVENT DATE: 20160905
